FAERS Safety Report 4755172-6 (Version None)
Quarter: 2005Q3

REPORT INFORMATION
  Report Type: 
  Country: None (occurrence: None)
  Receive Date: 20050829
  Receipt Date: 20050818
  Transmission Date: 20060218
  Serious: Yes (Other)
  Sender: FDA-Public Use
  Company Number: US-JNJFOC-20050802935

PATIENT
  Sex: Female
  Weight: 72.58 kg

DRUGS (3)
  1. REMICADE [Suspect]
     Indication: RHEUMATOID ARTHRITIS
     Dosage: 300-400 MG
     Route: 042
  2. METHOTREXATE [Concomitant]
  3. PREDNISONE TAB [Concomitant]

REACTIONS (3)
  - LYMPHADENOPATHY MEDIASTINAL [None]
  - PULMONARY TUBERCULOSIS [None]
  - TUBERCULOSIS [None]
